FAERS Safety Report 17009673 (Version 1)
Quarter: 2019Q4

REPORT INFORMATION
  Report Type: Spontaneous
  Country: US (occurrence: US)
  Receive Date: 20191108
  Receipt Date: 20191108
  Transmission Date: 20200122
  Serious: No
  Sender: FDA-Public Use
  Company Number: US-AMGEN INC.-USASP2019186054

PATIENT

DRUGS (1)
  1. AIMOVIG [Suspect]
     Active Substance: ERENUMAB-AOOE
     Indication: PRODUCT USED FOR UNKNOWN INDICATION
     Dosage: UNK (DOUBLE THE AMOUNT/ TWO AND TWO TOGETHER)
     Route: 065

REACTIONS (8)
  - Dehydration [Unknown]
  - Dizziness [Unknown]
  - Drug ineffective [Unknown]
  - Influenza like illness [Unknown]
  - Off label use [Unknown]
  - Nausea [Unknown]
  - Overdose [Unknown]
  - Vomiting [Unknown]
